FAERS Safety Report 25539260 (Version 1)
Quarter: 2025Q3

REPORT INFORMATION
  Report Type: Spontaneous
  Country: US (occurrence: US)
  Receive Date: 20250710
  Receipt Date: 20250710
  Transmission Date: 20251021
  Serious: No
  Sender: NEUROCRINE BIOSCIENCES
  Company Number: US-NEUROCRINE BIOSCIENCES INC.-2025NBI08662

PATIENT
  Age: 78 Year
  Sex: Male

DRUGS (2)
  1. INGREZZA [Suspect]
     Active Substance: VALBENAZINE DITOSYLATE
     Indication: Product used for unknown indication
     Route: 065
  2. BRUKINSA [Concomitant]
     Active Substance: ZANUBRUTINIB
     Indication: Waldenstrom^s macroglobulinaemia
     Dates: start: 202401

REACTIONS (4)
  - Mood altered [Unknown]
  - COVID-19 [Recovering/Resolving]
  - Asthenia [Not Recovered/Not Resolved]
  - Drooling [Unknown]
